FAERS Safety Report 4555824-7 (Version None)
Quarter: 2005Q1

REPORT INFORMATION
  Report Type: 
  Country: None (occurrence: None)
  Receive Date: 20050112
  Receipt Date: 20040706
  Transmission Date: 20050727
  Serious: Yes (Hospitalization, Other)
  Sender: FDA-Public Use
  Company Number: 200419020BWH

PATIENT
  Age: 51 Year
  Sex: Female
  Weight: 87.0906 kg

DRUGS (7)
  1. CIPRO [Suspect]
     Indication: SINUSITIS
     Dosage: 1000 MG, TOTAL DAILY, ORAL
     Route: 048
     Dates: start: 20030501
  2. PAXIL [Concomitant]
  3. SYNTHROID [Concomitant]
  4. SINGULAIR [Concomitant]
  5. ADVAIR DISKUS 100/50 [Concomitant]
  6. PREDNISONE [Concomitant]
  7. SULFA [Concomitant]

REACTIONS (9)
  - ANAEMIA [None]
  - APHASIA [None]
  - CONVULSION [None]
  - DYSKINESIA [None]
  - FALL [None]
  - HAEMOGLOBIN DECREASED [None]
  - HYPOTENSION [None]
  - LOSS OF CONSCIOUSNESS [None]
  - TREMOR [None]
